FAERS Safety Report 18519854 (Version 2)
Quarter: 2020Q4

REPORT INFORMATION
  Report Type: Other
  Country: ES (occurrence: ES)
  Receive Date: 20201119
  Receipt Date: 20201216
  Transmission Date: 20210114
  Serious: Yes (Other)
  Sender: FDA-Public Use
  Company Number: ES-ROCHE-2711493

PATIENT
  Age: 86 Year
  Sex: Female

DRUGS (2)
  1. LUCENTIS [Suspect]
     Active Substance: RANIBIZUMAB
     Indication: MACULOPATHY
     Dosage: NEW IVT
     Route: 031
  2. LUCENTIS [Suspect]
     Active Substance: RANIBIZUMAB
     Indication: NEOVASCULAR AGE-RELATED MACULAR DEGENERATION
     Dosage: 6 IVT (RIGHT), 10 IVT (LEFT)
     Route: 031

REACTIONS (4)
  - Visual acuity reduced [Unknown]
  - Macular hole [Unknown]
  - Visual field defect [Unknown]
  - Retinal pigment epithelial tear [Unknown]
